FAERS Safety Report 8734231 (Version 5)
Quarter: 2013Q1

REPORT INFORMATION
  Report Type: Spontaneous
  Country: US (occurrence: None)
  Receive Date: 20120802
  Receipt Date: 20121207
  Transmission Date: 20140127
  Serious: Yes (Other)
  Sender: FDA-Public Use
  Company Number: AUR-APL-2012-03230

PATIENT
  Age: 38 Year
  Sex: Male
  Weight: 90.7 kg

DRUGS (9)
  1. VENLAFAXINE [Suspect]
     Indication: ANXIETY
     Route: 048
     Dates: start: 201106, end: 20110622
  2. VENLAFAXINE [Suspect]
     Indication: IRRITABLE BOWEL SYNDROME
     Route: 048
     Dates: start: 201106, end: 20110622
  3. VENLAFAXINE [Suspect]
     Indication: DEPRESSION
     Route: 048
     Dates: start: 201106, end: 20110622
  4. VENLAFAXINE [Suspect]
     Indication: PANIC DISORDER
     Route: 048
     Dates: start: 201106, end: 20110622
  5. EFFEXOR XR [Suspect]
     Indication: ANXIETY
     Route: 048
     Dates: start: 2002
  6. EFFEXOR XR [Suspect]
     Indication: IRRITABLE BOWEL SYNDROME
     Route: 048
     Dates: start: 2002
  7. EFFEXOR XR [Suspect]
     Indication: DEPRESSION
     Route: 048
     Dates: start: 2002
  8. EFFEXOR XR [Suspect]
     Indication: PANIC DISORDER
     Route: 048
     Dates: start: 2002
  9. VITAMINS [Concomitant]

REACTIONS (18)
  - Drug withdrawal syndrome [None]
  - Fatigue [None]
  - Dizziness [None]
  - Headache [None]
  - Abnormal dreams [None]
  - Anxiety [None]
  - Depression [None]
  - Disease recurrence [None]
  - Drug ineffective [None]
  - Hot flush [None]
  - Product substitution issue [None]
  - Irritable bowel syndrome [None]
  - Panic attack [None]
  - Dyspnoea [None]
  - Back pain [None]
  - Arthralgia [None]
  - Hyperhidrosis [None]
  - Feeling hot [None]
